FAERS Safety Report 5093203-7 (Version None)
Quarter: 2006Q3

REPORT INFORMATION
  Report Type: 
  Country: None (occurrence: None)
  Receive Date: 20060828
  Receipt Date: 20060815
  Transmission Date: 20061208
  Serious: Yes (Hospitalization)
  Sender: FDA-Public Use
  Company Number: 2006BI011626

PATIENT
  Age: 56 Year
  Sex: Female

DRUGS (1)
  1. AVONEX [Suspect]
     Indication: MULTIPLE SCLEROSIS
     Dosage: 30 UG; QW; IM
     Route: 030
     Dates: start: 20060316

REACTIONS (8)
  - ASTHENIA [None]
  - CARDIAC MONITORING [None]
  - COLD SWEAT [None]
  - DYSARTHRIA [None]
  - HYPOAESTHESIA [None]
  - RETCHING [None]
  - THINKING ABNORMAL [None]
  - VERTIGO [None]
